FAERS Safety Report 4741213-9 (Version None)
Quarter: 2005Q3

REPORT INFORMATION
  Report Type: 
  Country: None (occurrence: None)
  Receive Date: 20050810
  Receipt Date: 20040103
  Transmission Date: 20060218
  Serious: No
  Sender: FDA-Public Use
  Company Number: US-GLAXOSMITHKLINE-A0538042A

PATIENT
  Age: 25 Year
  Sex: Female

DRUGS (2)
  1. PAXIL [Suspect]
     Indication: PANIC DISORDER
     Route: 048
     Dates: start: 20040801
  2. NO CONCURRENT MEDICATION [Concomitant]

REACTIONS (6)
  - MIGRAINE WITH AURA [None]
  - PAIN [None]
  - PHOTOPSIA [None]
  - PITUITARY ENLARGEMENT [None]
  - PUPILS UNEQUAL [None]
  - VISUAL FIELD DEFECT [None]
